FAERS Safety Report 21065844 (Version 2)
Quarter: 2022Q3

REPORT INFORMATION
  Report Type: Spontaneous
  Country: FR (occurrence: FR)
  Receive Date: 20220711
  Receipt Date: 20220718
  Transmission Date: 20221026
  Serious: Yes (Death, Hospitalization, Other)
  Sender: FDA-Public Use
  Company Number: FR-PFIZER INC-202200942393

PATIENT
  Age: 54 Year
  Sex: Male

DRUGS (2)
  1. COMIRNATY [Suspect]
     Active Substance: TOZINAMERAN
     Indication: COVID-19 immunisation
     Dosage: DOSE 2, 30 UG SINGLE
     Route: 030
     Dates: start: 20210510, end: 20210510
  2. RITUXIMAB [Suspect]
     Active Substance: RITUXIMAB
     Indication: Follicular lymphoma
     Dosage: 1 DF, EVERY 2 MONTHS
     Route: 042
     Dates: start: 20190527

REACTIONS (10)
  - Septic shock [Fatal]
  - Acute kidney injury [Unknown]
  - Bronchopulmonary aspergillosis [Unknown]
  - Acute respiratory distress syndrome [Unknown]
  - Pneumonia pneumococcal [Unknown]
  - Pneumomediastinum [Unknown]
  - Subcutaneous emphysema [Unknown]
  - Malaise [Unknown]
  - Asthenia [Unknown]
  - Vomiting [Unknown]

NARRATIVE: CASE EVENT DATE: 20211101
